FAERS Safety Report 6511627-5 (Version None)
Quarter: 2009Q4

REPORT INFORMATION
  Report Type: 
  Country: None (occurrence: None)
  Receive Date: 20091222
  Receipt Date: 20090430
  Transmission Date: 20100525
  Serious: No
  Sender: FDA-Public Use
  Company Number: US-ASTRAZENECA-2009UW10866

PATIENT
  Age: 68 Year
  Sex: Male
  Weight: 90.7 kg

DRUGS (5)
  1. CRESTOR [Suspect]
     Indication: BLOOD CHOLESTEROL INCREASED
     Route: 048
     Dates: start: 20090210, end: 20090201
  2. NOVOLOG [Concomitant]
     Indication: DIABETES MELLITUS
  3. GABAPENTIN [Concomitant]
  4. LANTUS [Concomitant]
  5. LISINOPRIL [Concomitant]
     Indication: BLOOD PRESSURE

REACTIONS (2)
  - DYSKINESIA [None]
  - PAIN [None]
